FAERS Safety Report 11249751 (Version 1)
Quarter: 2015Q3

REPORT INFORMATION
  Report Type: Spontaneous
  Country: US (occurrence: US)
  Receive Date: 20150708
  Receipt Date: 20150708
  Transmission Date: 20151125
  Serious: Yes (Other)
  Sender: FDA-Public Use
  Company Number: US-ELI_LILLY_AND_COMPANY-US200912003617

PATIENT
  Age: 54 Year
  Sex: Female
  Weight: 69.34 kg

DRUGS (3)
  1. GEMZAR [Suspect]
     Active Substance: GEMCITABINE HYDROCHLORIDE
     Indication: BREAST CANCER METASTATIC
     Dates: end: 20090917
  2. GEMZAR [Suspect]
     Active Substance: GEMCITABINE HYDROCHLORIDE
     Dosage: 1100 MG, DAYS 1, 8, AND 15
     Route: 042
     Dates: start: 20090917
  3. LAPATINIB [Concomitant]
     Active Substance: LAPATINIB
     Indication: BREAST CANCER METASTATIC
     Dosage: 1000 MG, DAILY (1/D)
     Route: 048
     Dates: start: 20090909

REACTIONS (5)
  - Gastrointestinal toxicity [Unknown]
  - Pain in extremity [Recovering/Resolving]
  - Erythema [Unknown]
  - Pain in extremity [Unknown]
  - Haemoglobin abnormal [Unknown]

NARRATIVE: CASE EVENT DATE: 20091102
